FAERS Safety Report 22006073 (Version 1)
Quarter: 2023Q1

REPORT INFORMATION
  Report Type: Spontaneous
  Country: HU (occurrence: GB)
  Receive Date: 20230217
  Receipt Date: 20230217
  Transmission Date: 20230418
  Serious: Yes (Other)
  Sender: FDA-Public Use
  Company Number: HU-GLAXOSMITHKLINE-GB2023GSK026478

PATIENT

DRUGS (1)
  1. VENTOLIN [Suspect]
     Active Substance: ALBUTEROL SULFATE
     Indication: Product used for unknown indication
     Dosage: UNK

REACTIONS (7)
  - Dizziness [Unknown]
  - Illness [Unknown]
  - Cough variant asthma [Unknown]
  - Suspected counterfeit product [Unknown]
  - Expired product administered [Unknown]
  - Product complaint [Unknown]
  - Drug ineffective [Unknown]
